FAERS Safety Report 6744327-7 (Version None)
Quarter: 2010Q2

REPORT INFORMATION
  Report Type: 
  Country: None (occurrence: None)
  Receive Date: 20100527
  Receipt Date: 20100524
  Transmission Date: 20101027
  Serious: Yes (Hospitalization, Other)
  Sender: FDA-Public Use
  Company Number: US-ROXANE LABORATORIES, INC.-2010-RO-00627RO

PATIENT
  Age: 36 Year
  Sex: Male

DRUGS (22)
  1. MERCAPTOPURINE [Suspect]
     Indication: B PRECURSOR TYPE ACUTE LEUKAEMIA
     Route: 048
  2. CYCLOPHOSPHAMIDE [Suspect]
     Indication: B PRECURSOR TYPE ACUTE LEUKAEMIA
  3. DEXAMETHASONE [Suspect]
     Indication: B PRECURSOR TYPE ACUTE LEUKAEMIA
  4. METHOTREXATE [Suspect]
     Indication: B PRECURSOR TYPE ACUTE LEUKAEMIA
     Route: 037
  5. METHOTREXATE [Suspect]
     Route: 042
  6. METHOTREXATE [Suspect]
     Route: 048
  7. LEUCOVORIN CALCIUM [Suspect]
  8. CALCIUM ACETATE [Suspect]
  9. ONDANSETRON [Suspect]
     Indication: NAUSEA
  10. LACTULOSE [Suspect]
     Indication: CONSTIPATION
  11. DAUNORUBICIN HCL [Suspect]
     Indication: B PRECURSOR TYPE ACUTE LEUKAEMIA
  12. VINCRISTINE [Suspect]
     Indication: B PRECURSOR TYPE ACUTE LEUKAEMIA
  13. ELSPAR [Suspect]
     Indication: B PRECURSOR TYPE ACUTE LEUKAEMIA
  14. CYTARABINE [Suspect]
     Indication: B PRECURSOR TYPE ACUTE LEUKAEMIA
  15. NPH INSULIN [Suspect]
  16. LEVOTHYROXINE SODIUM [Suspect]
  17. ACYCLOVIR [Suspect]
  18. TRIMETHOPRIM + SULFAMETHOXAZOLE [Suspect]
     Indication: ANTIFUNGAL PROPHYLAXIS
  19. SENNA [Suspect]
  20. DOCUSATE [Suspect]
  21. OXYCODONE [Suspect]
  22. GABAPENTIN [Suspect]

REACTIONS (4)
  - HYPERSENSITIVITY [None]
  - NAUSEA [None]
  - NEUROPATHY PERIPHERAL [None]
  - VOMITING [None]
